FAERS Safety Report 5327083-9 (Version None)
Quarter: 2007Q2

REPORT INFORMATION
  Report Type: 
  Country: None (occurrence: None)
  Receive Date: 20070517
  Receipt Date: 20070507
  Transmission Date: 20071010
  Serious: Yes (Other)
  Sender: FDA-Public Use
  Company Number: PHEH2007US07178

PATIENT
  Age: 71 Year
  Sex: Male

DRUGS (2)
  1. SANDIMMUNE [Suspect]
     Indication: HEART TRANSPLANT
     Dosage: 75 MG AM AND 50 MG PM PER DAY
     Route: 048
  2. CYCLOSPORINE [Suspect]
     Indication: HEART TRANSPLANT
     Dosage: 75 MG AM AND 50 MG PM
     Route: 048

REACTIONS (4)
  - CATARACT [None]
  - DEAFNESS [None]
  - HYPOAESTHESIA [None]
  - NEUROPATHY PERIPHERAL [None]
